FAERS Safety Report 5068877-7 (Version None)
Quarter: 2006Q3

REPORT INFORMATION
  Report Type: 
  Country: None (occurrence: None)
  Receive Date: 20060802
  Receipt Date: 20060517
  Transmission Date: 20061208
  Serious: Yes (Hospitalization)
  Sender: FDA-Public Use
  Company Number: US-BRISTOL-MYERS SQUIBB COMPANY-13379581

PATIENT
  Age: 70 Year
  Sex: Male
  Weight: 75 kg

DRUGS (5)
  1. WARFARIN SODIUM [Suspect]
     Indication: ATRIAL FIBRILLATION
     Dosage: STARTED ON 5 MG/D, STOPPED AND REC'D LOVENOX 4/06, RE-STARTED WARFARIN 5/9 AT 7.5 MG/D (1.5 TABS)
     Route: 048
     Dates: start: 20051101, end: 20060515
  2. CARDIZEM [Concomitant]
     Dates: end: 20060401
  3. ATENOLOL [Concomitant]
     Dates: start: 20051101
  4. ACIPHEX [Concomitant]
  5. LOVENOX [Concomitant]
     Dosage: REPLACED WARFARIN SODIUM THERAPY DURING APR-2006 ADMISSION
     Route: 051
     Dates: start: 20060101

REACTIONS (4)
  - INTERNATIONAL NORMALISED RATIO INCREASED [None]
  - OEDEMA PERIPHERAL [None]
  - PAIN IN EXTREMITY [None]
  - PULMONARY THROMBOSIS [None]
